FAERS Safety Report 5007774-X (Version None)
Quarter: 2006Q2

REPORT INFORMATION
  Report Type: 
  Country: None (occurrence: None)
  Receive Date: 20060522
  Receipt Date: 20060515
  Transmission Date: 20061013
  Serious: Yes (Other)
  Sender: FDA-Public Use
  Company Number: US-GLAXOSMITHKLINE-A0606277A

PATIENT
  Sex: Male

DRUGS (1)
  1. LAMICTAL [Suspect]
     Indication: COMPLEX PARTIAL SEIZURES
     Dosage: 200MG TWICE PER DAY
     Route: 048

REACTIONS (4)
  - BRADYPHRENIA [None]
  - BRAIN DAMAGE [None]
  - GRAND MAL CONVULSION [None]
  - MEMORY IMPAIRMENT [None]
